FAERS Safety Report 11108872 (Version 1)
Quarter: 2015Q2

REPORT INFORMATION
  Report Type: Spontaneous
  Country: US (occurrence: US)
  Receive Date: 20150513
  Receipt Date: 20150513
  Transmission Date: 20150821
  Serious: Yes (Hospitalization, Other)
  Sender: FDA-Public Use
  Company Number: US-DRREDDYS-USA/USA/15/0047922

PATIENT
  Age: 80 Year
  Sex: Male

DRUGS (3)
  1. DIVALPROEX SODIUM EXTENDED RELEASE TABLETS 500 MG [Suspect]
     Active Substance: DIVALPROEX SODIUM
     Indication: BIPOLAR DISORDER
     Route: 065
  2. DIVALPROEX SODIUM EXTENDED RELEASE TABLETS 500 MG [Interacting]
     Active Substance: DIVALPROEX SODIUM
     Route: 065
  3. ERTAPENEM [Interacting]
     Active Substance: ERTAPENEM
     Indication: ESCHERICHIA URINARY TRACT INFECTION
     Route: 042

REACTIONS (6)
  - Rib fracture [Unknown]
  - Lethargy [Recovered/Resolved]
  - Mania [Recovered/Resolved]
  - Escherichia urinary tract infection [Recovered/Resolved]
  - Drug interaction [Unknown]
  - Thrombocytopenia [Recovered/Resolved]
